FAERS Safety Report 9948811 (Version 1)
Quarter: 2014Q1

REPORT INFORMATION
  Report Type: Report from Study
  Country: US (occurrence: US)
  Receive Date: 20140304
  Receipt Date: 20140304
  Transmission Date: 20141002
  Serious: Yes (Other)
  Sender: FDA-Public Use
  Company Number: US-ROCHE-1354291

PATIENT
  Age: 17 Year
  Sex: Male
  Weight: 68.2 kg

DRUGS (10)
  1. NUTROPIN AQ [Suspect]
     Indication: GROWTH HORMONE DEFICIENCY
     Dosage: QD
     Route: 058
  2. ACCUTANE [Suspect]
     Indication: ACNE
     Route: 065
     Dates: end: 201307
  3. LEVOTHYROXINE [Concomitant]
     Dosage: QD
     Route: 048
  4. SINGULAR [Concomitant]
     Route: 048
  5. DEPOTEST [Concomitant]
     Route: 030
     Dates: end: 201307
  6. ANDROGEL [Concomitant]
     Route: 061
     Dates: start: 201307
  7. CORTEF [Concomitant]
  8. SOLU-CORTEF [Concomitant]
  9. ZOFRAN [Concomitant]
     Indication: VOMITING
     Dosage: 1 TAB PRN
     Route: 048
  10. ZOFRAN [Concomitant]
     Indication: NAUSEA

REACTIONS (3)
  - Insulin-like growth factor decreased [Unknown]
  - Irritability [Unknown]
  - Bone pain [Unknown]
